FAERS Safety Report 16099720 (Version 5)
Quarter: 2019Q2

REPORT INFORMATION
  Report Type: Spontaneous
  Country: US (occurrence: US)
  Receive Date: 20190321
  Receipt Date: 20190523
  Transmission Date: 20190711
  Serious: Yes (Hospitalization)
  Sender: FDA-Public Use
  Company Number: US-PFIZER INC-2019102690

PATIENT
  Age: 88 Year
  Sex: Female
  Weight: 86 kg

DRUGS (5)
  1. LIPITOR [Suspect]
     Active Substance: ATORVASTATIN CALCIUM
     Indication: STENT PLACEMENT
     Dosage: 40 MG, 1X/DAY
     Route: 048
  2. LIPITOR [Suspect]
     Active Substance: ATORVASTATIN CALCIUM
     Dosage: UNK (HALF TABLETS, SOMEDAYS TAKING WHOLES)
  3. TOPROL XL [Concomitant]
     Active Substance: METOPROLOL SUCCINATE
     Indication: BLOOD PRESSURE ABNORMAL
     Dosage: UNK
  4. PLAVIX [Concomitant]
     Active Substance: CLOPIDOGREL BISULFATE
     Dosage: 75 MG, UNK
  5. LIPITOR [Suspect]
     Active Substance: ATORVASTATIN CALCIUM
     Indication: BLOOD PRESSURE ABNORMAL
     Dosage: 80 MG, UNK
     Dates: start: 2006

REACTIONS (9)
  - Weight increased [Unknown]
  - Body height decreased [Unknown]
  - Hypotension [Unknown]
  - Blood pressure increased [Recovered/Resolved]
  - Product dose omission [Unknown]
  - Back injury [Unknown]
  - Intentional product misuse [Unknown]
  - Cardiac disorder [Unknown]
  - Stress [Unknown]

NARRATIVE: CASE EVENT DATE: 20190514
